FAERS Safety Report 4416514-4 (Version None)
Quarter: 2004Q3

REPORT INFORMATION
  Report Type: 
  Country: None (occurrence: None)
  Receive Date: 20040802
  Receipt Date: 20040720
  Transmission Date: 20050211
  Serious: Yes (Other)
  Sender: FDA-Public Use
  Company Number: 2004049544

PATIENT
  Age: 80 Year
  Sex: Male

DRUGS (2)
  1. LIPITOR [Suspect]
     Indication: ILL-DEFINED DISORDER
     Dosage: 20 MG
  2. ASPIRIN [Concomitant]

REACTIONS (4)
  - LOWER LIMB FRACTURE [None]
  - MUSCLE DISORDER [None]
  - MYALGIA [None]
  - POST PROCEDURAL COMPLICATION [None]
